FAERS Safety Report 9539217 (Version 1)
Quarter: 2013Q2

REPORT INFORMATION
  Report Type: Spontaneous
  Country: US (occurrence: None)
  Receive Date: 20130517
  Receipt Date: 20130517
  Transmission Date: 20140414
  Serious: Yes (Hospitalization)
  Sender: FDA-Public Use
  Company Number: 1000043508

PATIENT
  Sex: Female

DRUGS (3)
  1. VIIBRYD [Suspect]
     Indication: DEPRESSION
     Route: 048
  2. VIIBRYD [Suspect]
     Indication: PANIC DISORDER
     Route: 048
  3. TRAZODONE (TRAZODONE) [Concomitant]

REACTIONS (1)
  - Serotonin syndrome [None]
